FAERS Safety Report 24766499 (Version 1)
Quarter: 2024Q4

REPORT INFORMATION
  Report Type: Spontaneous
  Country: US (occurrence: US)
  Receive Date: 20241223
  Receipt Date: 20241223
  Transmission Date: 20250115
  Serious: No
  Sender: MERCK
  Company Number: US-009507513-2412USA008012

PATIENT
  Sex: Female
  Weight: 68.9 kg

DRUGS (12)
  1. WINREVAIR [Suspect]
     Active Substance: SOTATERCEPT-CSRK
     Indication: Product used for unknown indication
     Dosage: UNK
  2. REMODULIN [Suspect]
     Active Substance: TREPROSTINIL
     Indication: Pulmonary arterial hypertension
     Dosage: 0.060 MICROGRAM PER KILOGRAM CONTINUING
     Route: 041
  3. REMODULIN [Suspect]
     Active Substance: TREPROSTINIL
     Dosage: CONTINUING
     Route: 041
     Dates: start: 20230807
  4. METOPROLOL TARTRATE [Concomitant]
     Active Substance: METOPROLOL TARTRATE
  5. PLAQUENIL [Concomitant]
     Active Substance: HYDROXYCHLOROQUINE SULFATE
  6. TADALAFIL [Concomitant]
     Active Substance: TADALAFIL
  7. IMODIUM [Concomitant]
     Active Substance: LOPERAMIDE HYDROCHLORIDE
  8. MAGNESIUM [Concomitant]
     Active Substance: MAGNESIUM
  9. OXYGEN [Concomitant]
     Active Substance: OXYGEN
  10. TYLENOL EXTRA STRENGTH [Concomitant]
     Active Substance: ACETAMINOPHEN
  11. ATROVENT HFA [Concomitant]
     Active Substance: IPRATROPIUM BROMIDE
  12. LORATADINE [Concomitant]
     Active Substance: LORATADINE

REACTIONS (2)
  - Nausea [Recovered/Resolved]
  - Headache [Recovered/Resolved]
